FAERS Safety Report 9254150 (Version 2)
Quarter: 2013Q2

REPORT INFORMATION
  Report Type: Spontaneous
  Country: US (occurrence: None)
  Receive Date: 20130418
  Receipt Date: 20130419
  Transmission Date: 20140414
  Serious: Yes (Hospitalization)
  Sender: FDA-Public Use
  Company Number: 2013034966

PATIENT
  Sex: Female

DRUGS (5)
  1. BERINERT [Suspect]
     Indication: HEREDITARY ANGIOEDEMA
     Dosage: (NOT OTHERWISE SPECIFIED))
     Route: 042
  2. CINRYZE [Suspect]
     Dosage: 1X/3 DAYS, SELF INFUSED PERIPHERALLY INTRAVENOUS (NOT OTHERWISE SPECIFIED)), (2000 IU 1X/3 DAY:
     Route: 042
  3. KLONOPIN (CLONAZEPAM) (TABLETS) [Concomitant]
  4. TRAZODONE (TRAZODONE) [Concomitant]
  5. PERCOCET (OXYCOCET) [Concomitant]

REACTIONS (2)
  - Drug ineffective [None]
  - Off label use [None]
